FAERS Safety Report 7712521-4 (Version None)
Quarter: 2011Q3

REPORT INFORMATION
  Report Type: 
  Country: None (occurrence: None)
  Receive Date: 20110826
  Receipt Date: 20110822
  Transmission Date: 20111222
  Serious: Yes (Other)
  Sender: FDA-Public Use
  Company Number: US-PFIZER INC-2011130960

PATIENT
  Sex: Male

DRUGS (12)
  1. HYDROCHLOROTHIAZIDE [Concomitant]
     Indication: HYPERTENSION
     Dosage: UNK
     Dates: start: 20060101
  2. LIPITOR [Concomitant]
     Indication: HYPERLIPIDAEMIA
     Dosage: UNK
     Dates: start: 20020101
  3. PAXIL [Concomitant]
     Indication: ANXIETY
  4. ELAVIL [Concomitant]
     Indication: NEUROPATHY PERIPHERAL
     Dosage: UNK
     Dates: start: 20080101, end: 20100101
  5. CHANTIX [Suspect]
     Dosage: 0.5 MG AND 1 MG
     Dates: start: 20091009, end: 20091016
  6. DECONAMINE [Concomitant]
     Indication: RHINITIS ALLERGIC
     Dosage: UNK
     Dates: start: 20060101, end: 20100101
  7. CHANTIX [Suspect]
     Dosage: 0.5 MG AND 1 MG
     Dates: start: 20080505, end: 20080514
  8. RISPERDAL [Concomitant]
     Indication: SCHIZOPHRENIA
     Dosage: UNK
     Dates: start: 19990101, end: 20100101
  9. PLAVIX [Concomitant]
     Indication: PERIPHERAL ARTERIAL OCCLUSIVE DISEASE
     Dosage: UNK
     Dates: start: 20080101
  10. PAXIL [Concomitant]
     Indication: DEPRESSION
     Dosage: UNK
     Dates: start: 19990101, end: 20110101
  11. FLONASE [Concomitant]
     Indication: RHINITIS ALLERGIC
     Dosage: UNK
     Dates: start: 20060101
  12. CHANTIX [Suspect]
     Indication: SMOKING CESSATION THERAPY
     Dosage: 0.5 MG AND 1 MG
     Dates: start: 20080202, end: 20080216

REACTIONS (6)
  - DEPRESSION [None]
  - ANXIETY [None]
  - MENTAL DISORDER [None]
  - SUICIDE ATTEMPT [None]
  - SCHIZOPHRENIA [None]
  - INTENTIONAL OVERDOSE [None]
